FAERS Safety Report 24185100 (Version 1)
Quarter: 2024Q3

REPORT INFORMATION
  Report Type: Spontaneous
  Country: US (occurrence: US)
  Receive Date: 20240807
  Receipt Date: 20240807
  Transmission Date: 20241017
  Serious: No
  Sender: ROCHE
  Company Number: US-ROCHE-10000048862

PATIENT
  Age: 80 Year
  Sex: Male

DRUGS (2)
  1. RITUXIMAB [Suspect]
     Active Substance: RITUXIMAB
     Indication: Monoclonal B-cell lymphocytosis
     Route: 065
     Dates: start: 202105
  2. BENDAMUSTINE [Suspect]
     Active Substance: BENDAMUSTINE
     Indication: Monoclonal B-cell lymphocytosis
     Route: 065
     Dates: start: 202105

REACTIONS (1)
  - Babesiosis [Recovered/Resolved]
